FAERS Safety Report 8404531 (Version 2)
Quarter: 2012Q4

REPORT INFORMATION
  Report Type: 
  Country: BR (occurrence: BR)
  Receive Date: 20120214
  Receipt Date: 20120904
  Transmission Date: 20130627
  Serious: No
  Sender: FDA-Public Use
  Company Number: BR-ELI_LILLY_AND_COMPANY-BR201202001486

PATIENT
  Age: 75 Year
  Sex: Female

DRUGS (9)
  1. EFFIENT [Suspect]
     Indication: ANTIPLATELET THERAPY
     Dosage: 10 mg, qd
     Route: 048
     Dates: start: 201112
  2. ATENOLOL [Concomitant]
     Indication: HYPERTENSION
     Dosage: 50 mg, qd
     Route: 048
  3. SIMVASTATIN [Concomitant]
     Indication: HYPERCHOLESTEROLAEMIA
     Dosage: 20 mg, qd
     Route: 048
  4. METFORMIN [Concomitant]
     Indication: DIABETES MELLITUS
     Dosage: 1700 mg, qd
     Route: 048
  5. MONOCORDIL [Concomitant]
     Dosage: 40 mg, qd
     Route: 048
  6. GALVUS [Concomitant]
     Indication: DIABETES MELLITUS
     Dosage: 50 mg, qd
     Route: 048
  7. EUTHYROX [Concomitant]
     Indication: HYPOTHYROIDISM
     Dosage: 50 ug, qd
     Route: 048
  8. DIAMICRON [Concomitant]
     Indication: DIABETES MELLITUS
     Dosage: 30 mg, qd
     Route: 048
  9. ALPRAZOLAM [Concomitant]
     Indication: PANIC DISORDER
     Dosage: 0.5 mg, qd
     Route: 048

REACTIONS (1)
  - Nervousness [Recovered/Resolved]
